FAERS Safety Report 5323975-5 (Version None)
Quarter: 2007Q2

REPORT INFORMATION
  Report Type: 
  Country: None (occurrence: None)
  Receive Date: 20070509
  Receipt Date: 20070509
  Transmission Date: 20071010
  Serious: No
  Sender: FDA-Public Use
  Company Number: None

PATIENT
  Age: 59 Year
  Sex: Female
  Weight: 54.4316 kg

DRUGS (2)
  1. ACTENOL 35MG PROCTOR AND GAMBLE [Suspect]
     Indication: OSTEOPENIA
     Dosage: 35MG ONE A DAY
     Dates: start: 20031105, end: 20050831
  2. ACTENOL 35MG PROCTOR AND GAMBLE [Suspect]

REACTIONS (1)
  - JAW OPERATION [None]
